FAERS Safety Report 8280823-1 (Version None)
Quarter: 2012Q2

REPORT INFORMATION
  Report Type: 
  Country: None (occurrence: None)
  Receive Date: 20120412
  Receipt Date: 20120408
  Transmission Date: 20120825
  Serious: Yes (Death)
  Sender: FDA-Public Use
  Company Number: JP-ABBOTT-10P-087-0629439-00

PATIENT
  Sex: Female
  Weight: 56.7 kg

DRUGS (8)
  1. PREDNISOLONE [Concomitant]
     Indication: RHEUMATOID ARTHRITIS
     Route: 048
  2. ALENDRONATE SODIUM [Concomitant]
     Indication: OSTEOPOROSIS
     Route: 048
     Dates: start: 20090731
  3. CHLORHEXIDINE HYDROCHLORIDE/DIPHENHYDRAMINE SALICYLATE/HYDROCORTISONE [Concomitant]
     Indication: STOMATITIS
     Route: 061
  4. ETODOLAC [Concomitant]
     Indication: RHEUMATOID ARTHRITIS
     Route: 048
  5. HUMIRA [Suspect]
     Route: 058
     Dates: start: 20090805
  6. FELBINAC [Concomitant]
     Indication: RHEUMATOID ARTHRITIS
     Route: 062
  7. HUMIRA [Suspect]
     Indication: RHEUMATOID ARTHRITIS
     Route: 058
  8. BUCILLAMINE [Concomitant]
     Indication: RHEUMATOID ARTHRITIS
     Route: 048

REACTIONS (2)
  - PULMONARY EMBOLISM [None]
  - SUFFOCATION FEELING [None]
